FAERS Safety Report 7345112-8 (Version None)
Quarter: 2011Q1

REPORT INFORMATION
  Report Type: 
  Country: None (occurrence: None)
  Receive Date: 20110310
  Receipt Date: 20110303
  Transmission Date: 20110831
  Serious: Yes (Other)
  Sender: FDA-Public Use
  Company Number: US-ELI_LILLY_AND_COMPANY-US201103001724

PATIENT
  Sex: Female

DRUGS (2)
  1. HUMALOG [Suspect]
     Dosage: 9 U, 3/D
  2. HUMALOG [Suspect]
     Indication: DIABETES MELLITUS
     Dosage: 9 U, 3/D

REACTIONS (3)
  - ILL-DEFINED DISORDER [None]
  - TRANSPLANT [None]
  - COMPLICATIONS OF TRANSPLANT SURGERY [None]
